FAERS Safety Report 8584534-4 (Version None)
Quarter: 2012Q3

REPORT INFORMATION
  Report Type: 
  Country: None (occurrence: None)
  Receive Date: 20120810
  Receipt Date: 20120806
  Transmission Date: 20120928
  Serious: No
  Sender: FDA-Public Use
  Company Number: US-PFIZER INC-2012191142

PATIENT
  Sex: Female

DRUGS (2)
  1. LYRICA [Suspect]
     Indication: NERVE INJURY
     Dosage: UNK
  2. LYRICA [Suspect]
     Indication: NEURALGIA

REACTIONS (6)
  - DIZZINESS [None]
  - DEPRESSION [None]
  - CRYING [None]
  - MOOD ALTERED [None]
  - DISTURBANCE IN ATTENTION [None]
  - NAUSEA [None]
